FAERS Safety Report 16024949 (Version 1)
Quarter: 2019Q1

REPORT INFORMATION
  Report Type: Spontaneous
  Country: US (occurrence: US)
  Receive Date: 20190301
  Receipt Date: 20190301
  Transmission Date: 20190418
  Serious: No
  Sender: FDA-Public Use
  Company Number: US-SA-2019SA055555

PATIENT
  Sex: Male

DRUGS (4)
  1. DOXYCYCLINE. [Concomitant]
     Active Substance: DOXYCYCLINE
  2. RESTASIS [Concomitant]
     Active Substance: CYCLOSPORINE
  3. DUPIXENT [Suspect]
     Active Substance: DUPILUMAB
     Indication: DERMATITIS
     Dosage: 300 MG, QOW
     Route: 058
  4. FLUOCINONIDE. [Concomitant]
     Active Substance: FLUOCINONIDE

REACTIONS (2)
  - Conjunctivitis [Not Recovered/Not Resolved]
  - Product dose omission [Not Recovered/Not Resolved]
